FAERS Safety Report 7004665-X (Version None)
Quarter: 2010Q3

REPORT INFORMATION
  Report Type: 
  Country: None (occurrence: None)
  Receive Date: 20100921
  Receipt Date: 20100910
  Transmission Date: 20110219
  Serious: Yes (Hospitalization)
  Sender: FDA-Public Use
  Company Number: CA-JNJFOC-20100904546

PATIENT
  Sex: Female
  Weight: 79 kg

DRUGS (5)
  1. REMICADE [Suspect]
     Indication: CROHN'S DISEASE
     Route: 042
  2. CELEBREX [Concomitant]
     Route: 048
  3. HYDROMORPHONE HCL [Concomitant]
  4. METFORMIN [Concomitant]
     Route: 048
  5. GABAPENTIN [Concomitant]

REACTIONS (1)
  - HERNIA [None]
